FAERS Safety Report 6811388-6 (Version None)
Quarter: 2010Q2

REPORT INFORMATION
  Report Type: 
  Country: None (occurrence: None)
  Receive Date: 20100630
  Receipt Date: 20100408
  Transmission Date: 20101027
  Serious: No
  Sender: FDA-Public Use
  Company Number: US-AMGEN-KDL385177

PATIENT
  Sex: Female
  Weight: 54.5 kg

DRUGS (5)
  1. PROCRIT [Suspect]
     Indication: PREOPERATIVE CARE
     Dates: start: 20090729, end: 20090801
  2. UNSPECIFIED PAIN MEDICATION [Concomitant]
  3. ETODOLAC [Concomitant]
  4. TYLENOL [Concomitant]
  5. VICODIN [Concomitant]

REACTIONS (10)
  - ABDOMINAL PAIN UPPER [None]
  - ACNE [None]
  - BLISTER [None]
  - DIARRHOEA [None]
  - HEADACHE [None]
  - JOINT DESTRUCTION [None]
  - OROPHARYNGEAL BLISTERING [None]
  - POLYARTHRITIS [None]
  - RASH [None]
  - SYSTEMIC LUPUS ERYTHEMATOSUS [None]
